FAERS Safety Report 11236640 (Version 2)
Quarter: 2016Q2

REPORT INFORMATION
  Report Type: Report from Study
  Country: CA (occurrence: CA)
  Receive Date: 20150703
  Receipt Date: 20160622
  Transmission Date: 20160815
  Serious: Yes (Other)
  Sender: FDA-Public Use
  Company Number: CA-ROCHE-1601587

PATIENT
  Age: 68 Year
  Sex: Male
  Weight: 97 kg

DRUGS (9)
  1. ESBRIET [Suspect]
     Active Substance: PIRFENIDONE
     Route: 048
     Dates: start: 20150219
  2. VENTOLIN [Concomitant]
     Active Substance: ALBUTEROL SULFATE
  3. ADVAIR HFA [Concomitant]
     Active Substance: FLUTICASONE PROPIONATE\SALMETEROL XINAFOATE
  4. SPIRIVA [Concomitant]
     Active Substance: TIOTROPIUM BROMIDE MONOHYDRATE
  5. ESBRIET [Suspect]
     Active Substance: PIRFENIDONE
     Route: 048
     Dates: start: 20150226
  6. ESBRIET [Suspect]
     Active Substance: PIRFENIDONE
     Dosage: ON HOLD AS OF 24-APR-2015
     Route: 048
     Dates: start: 20150325
  7. ESBRIET [Suspect]
     Active Substance: PIRFENIDONE
     Indication: IDIOPATHIC PULMONARY FIBROSIS
     Route: 048
     Dates: start: 20150212
  8. ESBRIET [Suspect]
     Active Substance: PIRFENIDONE
     Route: 048
  9. RABEPRAZOLE [Concomitant]
     Active Substance: RABEPRAZOLE

REACTIONS (7)
  - Panic attack [Recovered/Resolved]
  - Hepatic function abnormal [Recovered/Resolved]
  - Cough [Recovering/Resolving]
  - Dyspnoea [Unknown]
  - Hot flush [Recovered/Resolved]
  - Malaise [Unknown]
  - Dyspnoea [Recovered/Resolved]

NARRATIVE: CASE EVENT DATE: 201503
